FAERS Safety Report 12625563 (Version 1)
Quarter: 2016Q3

REPORT INFORMATION
  Report Type: Spontaneous
  Country: US (occurrence: None)
  Receive Date: 20160804
  Receipt Date: 20160804
  Transmission Date: 20161109
  Serious: Yes (Other)
  Sender: FDA-Public Use
  Company Number: None

PATIENT
  Age: 66 Year
  Sex: Female

DRUGS (15)
  1. ACTONEL [Concomitant]
     Active Substance: RISEDRONATE SODIUM
  2. NASONEX [Concomitant]
     Active Substance: MOMETASONE FUROATE
  3. PREDNISONE. [Concomitant]
     Active Substance: PREDNISONE
  4. ESTRADIOL. [Concomitant]
     Active Substance: ESTRADIOL
  5. ESTRACE [Concomitant]
     Active Substance: ESTRADIOL
  6. FOLIC ACID. [Concomitant]
     Active Substance: FOLIC ACID
  7. ALBUTEROL. [Concomitant]
     Active Substance: ALBUTEROL
  8. PROAIR HFA [Concomitant]
     Active Substance: ALBUTEROL SULFATE
  9. RANITIDINE. [Concomitant]
     Active Substance: RANITIDINE
  10. CALCIUM [Concomitant]
     Active Substance: CALCIUM
  11. TYLENOL [Concomitant]
     Active Substance: ACETAMINOPHEN
  12. GLEEVEC [Suspect]
     Active Substance: IMATINIB MESYLATE
     Indication: GASTRIC CANCER
     Route: 048
     Dates: start: 20150903
  13. HYDROXYCHLOR [Concomitant]
     Active Substance: HYDROXYCHLOROQUINE
  14. LORAZEPAM. [Concomitant]
     Active Substance: LORAZEPAM
  15. METHOTREXATE. [Concomitant]
     Active Substance: METHOTREXATE

REACTIONS (1)
  - Drug dose omission [None]

NARRATIVE: CASE EVENT DATE: 201608
